FAERS Safety Report 7371523-0 (Version None)
Quarter: 2011Q1

REPORT INFORMATION
  Report Type: 
  Country: None (occurrence: None)
  Receive Date: 20110324
  Receipt Date: 20110322
  Transmission Date: 20110831
  Serious: Yes (Death, Hospitalization)
  Sender: FDA-Public Use
  Company Number: BR-PFIZER INC-2011063036

PATIENT
  Sex: Male

DRUGS (1)
  1. FRONTAL [Suspect]
     Dosage: 2 MG, 1X/DAY
     Route: 048
     Dates: start: 20101101

REACTIONS (3)
  - DEATH [None]
  - FEMUR FRACTURE [None]
  - FALL [None]
